FAERS Safety Report 13516761 (Version 1)
Quarter: 2017Q2

REPORT INFORMATION
  Report Type: Spontaneous
  Country: US (occurrence: US)
  Receive Date: 20170505
  Receipt Date: 20170505
  Transmission Date: 20170830
  Serious: Yes (Hospitalization, Other)
  Sender: FDA-Public Use
  Company Number: US-BAYER-2017-084318

PATIENT
  Age: 62 Year
  Sex: Male

DRUGS (3)
  1. NAPROXEN SODIUM LIQUID GEL CAPSULES [Interacting]
     Active Substance: NAPROXEN SODIUM
     Dosage: UNK
  2. COCAINE [Concomitant]
     Active Substance: COCAINE
     Dosage: UNK
  3. ACETYLSALICYLIC ACID (} 100 MG) [Suspect]
     Active Substance: ASPIRIN
     Dosage: UNK

REACTIONS (5)
  - Labelled drug-drug interaction medication error [None]
  - Mouth haemorrhage [None]
  - Drug administration error [None]
  - Epistaxis [None]
  - Melaena [None]
